FAERS Safety Report 9850644 (Version 1)
Quarter: 2014Q1

REPORT INFORMATION
  Report Type: Spontaneous
  Country: US (occurrence: US)
  Receive Date: 20140128
  Receipt Date: 20140128
  Transmission Date: 20141002
  Serious: No
  Sender: FDA-Public Use
  Company Number: US-GILEAD-2012-0050338

PATIENT
  Age: 43 Year
  Sex: Female

DRUGS (9)
  1. CAYSTON [Suspect]
     Indication: CYSTIC FIBROSIS
  2. CAYSTON [Suspect]
     Indication: PSEUDOMONAS INFECTION
  3. AZITHROMYCIN [Concomitant]
  4. PLAQUENIL                          /00072603/ [Concomitant]
  5. PREDNISONE [Concomitant]
  6. ARANESP [Concomitant]
  7. EFFEXOR [Concomitant]
  8. NEXIUM                             /01479302/ [Concomitant]
  9. LEVAQUIN [Concomitant]

REACTIONS (3)
  - Hepatic enzyme increased [Unknown]
  - Cystic fibrosis [Unknown]
  - Pseudomonas infection [Unknown]
